FAERS Safety Report 10510848 (Version 3)
Quarter: 2014Q4

REPORT INFORMATION
  Report Type: Report from Study
  Country: JP (occurrence: JP)
  Receive Date: 20141010
  Receipt Date: 20141105
  Transmission Date: 20150528
  Serious: Yes (Life-Threatening, Hospitalization)
  Sender: FDA-Public Use
  Company Number: JP-AMGEN-JPNCT2014033718

PATIENT
  Age: 74 Year
  Sex: Male
  Weight: 77 kg

DRUGS (9)
  1. MAGNESIUM OXIDE. [Concomitant]
     Active Substance: MAGNESIUM OXIDE
     Dosage: 3 G, QD
     Route: 048
     Dates: start: 20080602
  2. URIEF [Concomitant]
     Active Substance: SILODOSIN
     Dosage: 8 MG, QD
     Route: 048
     Dates: start: 20110516
  3. DENOSUMAB [Suspect]
     Active Substance: DENOSUMAB
     Indication: METASTASES TO BONE
     Dosage: 120 MG, UNK
     Route: 058
     Dates: start: 20130121
  4. CALCIUM LACTATE [Concomitant]
     Active Substance: CALCIUM LACTATE
     Dosage: 4 G, QD
     Route: 048
     Dates: start: 20130325, end: 20131228
  5. ODYNE [Concomitant]
     Active Substance: FLUTAMIDE
     Dosage: UNK
     Route: 065
     Dates: start: 20130819, end: 20131002
  6. PREDNISOLONE. [Concomitant]
     Active Substance: PREDNISOLONE
     Dosage: UNK
     Route: 065
     Dates: start: 20131112
  7. PURSENNID                          /00571902/ [Concomitant]
     Active Substance: SENNOSIDES A AND B
     Dosage: 48 MG, QD
     Route: 048
     Dates: start: 20080602
  8. ALFAROL [Concomitant]
     Active Substance: ALFACALCIDOL
     Dosage: 1 MUG, QD
     Route: 048
     Dates: start: 20130121, end: 20131226
  9. ZOLADEX LA [Concomitant]
     Active Substance: GOSERELIN ACETATE
     Dosage: UNK
     Route: 065
     Dates: start: 20120213

REACTIONS (5)
  - Pneumonia [Recovered/Resolved]
  - Traumatic fracture [Recovered/Resolved with Sequelae]
  - Hypocalcaemia [Recovering/Resolving]
  - Acute respiratory distress syndrome [Recovered/Resolved]
  - Bone pain [Recovering/Resolving]

NARRATIVE: CASE EVENT DATE: 20131010
